FAERS Safety Report 5403589-9 (Version None)
Quarter: 2007Q3

REPORT INFORMATION
  Report Type: 
  Country: None (occurrence: None)
  Receive Date: 20070802
  Receipt Date: 20070727
  Transmission Date: 20080115
  Serious: Yes (Other)
  Sender: FDA-Public Use
  Company Number: PHRM2007FR01677

PATIENT
  Age: 28 Year
  Sex: Male
  Weight: 54 kg

DRUGS (1)
  1. EXJADE [Suspect]
     Indication: IRON OVERLOAD
     Dosage: 1000 MG, QD
     Route: 048
     Dates: start: 20070515, end: 20070615

REACTIONS (12)
  - ANAEMIA [None]
  - BILIRUBIN CONJUGATED INCREASED [None]
  - BLOOD BILIRUBIN INCREASED [None]
  - BLOOD CHOLESTEROL DECREASED [None]
  - CYTOLYTIC HEPATITIS [None]
  - DYSPNOEA EXERTIONAL [None]
  - FOLATE DEFICIENCY [None]
  - HAEMOGLOBIN DECREASED [None]
  - HEADACHE [None]
  - MEAN CELL VOLUME ABNORMAL [None]
  - RED BLOOD CELL SEDIMENTATION RATE INCREASED [None]
  - TRANSAMINASES INCREASED [None]
